FAERS Safety Report 10689714 (Version 2)
Quarter: 2015Q1

REPORT INFORMATION
  Report Type: Spontaneous
  Country: US (occurrence: US)
  Receive Date: 20150105
  Receipt Date: 20150327
  Transmission Date: 20150720
  Serious: No
  Sender: FDA-Public Use
  Company Number: US-PFIZER INC-2014363633

PATIENT
  Age: 61 Year
  Sex: Female

DRUGS (8)
  1. OXYCODONE [Suspect]
     Active Substance: OXYCODONE
     Indication: PAIN
     Dosage: UNK
  2. LIPITOR [Suspect]
     Active Substance: ATORVASTATIN CALCIUM
     Indication: BLOOD CHOLESTEROL
     Dosage: 20 MG, UNK
     Dates: start: 1995
  3. PERCODAN [Suspect]
     Active Substance: ASPIRIN\OXYCODONE HYDROCHLORIDE
     Indication: PAIN
     Dosage: UNK
  4. CECLOR [Suspect]
     Active Substance: CEFACLOR
     Indication: INFECTION
     Dosage: UNK
  5. HYDROCODONE [Suspect]
     Active Substance: HYDROCODONE
     Indication: PAIN
     Dosage: UNK
  6. TRAMADOL [Suspect]
     Active Substance: TRAMADOL
     Indication: PAIN
     Dosage: UNK
     Dates: start: 2014
  7. MORPHINE SULFATE. [Suspect]
     Active Substance: MORPHINE SULFATE
     Indication: PAIN
     Dosage: UNK
  8. CODEINE [Suspect]
     Active Substance: CODEINE
     Indication: PAIN
     Dosage: UNK

REACTIONS (1)
  - Drug hypersensitivity [Unknown]
